FAERS Safety Report 4709194-1 (Version None)
Quarter: 2005Q3

REPORT INFORMATION
  Report Type: 
  Country: None (occurrence: None)
  Receive Date: 20050705
  Receipt Date: 20050621
  Transmission Date: 20060218
  Serious: Yes (Other)
  Sender: FDA-Public Use
  Company Number: 2005091778

PATIENT
  Sex: Female
  Weight: 83.9154 kg

DRUGS (5)
  1. VIAGRA [Suspect]
     Indication: EJACULATION DISORDER
     Dosage: UNK (50 MG, AS NECESSARY); ORAL
     Route: 048
     Dates: start: 20040101
  2. VIAGRA [Suspect]
     Indication: ERECTILE DYSFUNCTION
     Dosage: UNK (50 MG, AS NECESSARY); ORAL
     Route: 048
     Dates: start: 20040101
  3. MODAFINIL [Concomitant]
  4. NABUMETONE [Concomitant]
  5. OPHTHALMOLOGICALS [Concomitant]

REACTIONS (4)
  - BUNION [None]
  - DIARRHOEA [None]
  - DRUG INEFFECTIVE [None]
  - FOOT FRACTURE [None]
